FAERS Safety Report 5733285-X (Version None)
Quarter: 2008Q2

REPORT INFORMATION
  Report Type: 
  Country: None (occurrence: None)
  Receive Date: 20080509
  Receipt Date: 20080507
  Transmission Date: 20081010
  Serious: Yes (Hospitalization)
  Sender: FDA-Public Use
  Company Number: B0519333A

PATIENT
  Age: 39 Year
  Sex: Male
  Weight: 67.7 kg

DRUGS (4)
  1. ACYCLOVIR [Suspect]
     Route: 042
     Dates: start: 20080327, end: 20080328
  2. NOVORAPID [Concomitant]
     Indication: DIABETES MELLITUS
  3. LANTUS [Concomitant]
     Indication: DIABETES MELLITUS
  4. LEVEMIR [Concomitant]
     Indication: DIABETES MELLITUS

REACTIONS (1)
  - HALLUCINATION, VISUAL [None]
